FAERS Safety Report 19007552 (Version 1)
Quarter: 2021Q1

REPORT INFORMATION
  Report Type: Spontaneous
  Country: GB (occurrence: GB)
  Receive Date: 20210315
  Receipt Date: 20210315
  Transmission Date: 20210420
  Serious: Yes (Other)
  Sender: FDA-Public Use
  Company Number: GB-CURIUM-2021000090

PATIENT
  Age: 27 Year
  Sex: Female

DRUGS (2)
  1. SODIUM IODIDE I 131 [Suspect]
     Active Substance: SODIUM IODIDE I-131
     Indication: HYPERTHYROIDISM
     Route: 065
     Dates: start: 198111, end: 198111
  2. SODIUM IODIDE I 131 [Suspect]
     Active Substance: SODIUM IODIDE I-131
     Indication: HYPERTHYROIDISM
     Route: 065
     Dates: start: 198211, end: 198211

REACTIONS (2)
  - Maternal exposure during pregnancy [Recovered/Resolved]
  - Contraindicated product administered [Recovered/Resolved]
